FAERS Safety Report 18021718 (Version 3)
Quarter: 2020Q3

REPORT INFORMATION
  Report Type: Spontaneous
  Country: US (occurrence: US)
  Receive Date: 20200714
  Receipt Date: 20200821
  Transmission Date: 20201103
  Serious: Yes (Life-Threatening)
  Sender: FDA-Public Use
  Company Number: NVSC2020US195546

PATIENT
  Sex: Female

DRUGS (3)
  1. PROVAL [Concomitant]
     Indication: PRODUCT USED FOR UNKNOWN INDICATION
     Dosage: UNK
     Route: 065
  2. VIVELLE?DOT [Suspect]
     Active Substance: ESTRADIOL
     Indication: PRODUCT USED FOR UNKNOWN INDICATION
     Dosage: 0.075 OT, Q2W
     Route: 065
  3. VIVELLE?DOT [Suspect]
     Active Substance: ESTRADIOL
     Dosage: 1 MG
     Route: 065

REACTIONS (5)
  - Product adhesion issue [Unknown]
  - Underdose [Unknown]
  - Herpes zoster [Unknown]
  - Malaise [Unknown]
  - Abdominal distension [Unknown]
